FAERS Safety Report 10853778 (Version 2)
Quarter: 2015Q1

REPORT INFORMATION
  Report Type: Spontaneous
  Country: JP (occurrence: None)
  Receive Date: 20150218
  Receipt Date: 20150319
  Transmission Date: 20150721
  Serious: Yes (Life-Threatening, Other)
  Sender: FDA-Public Use
  Company Number: 2015BCR00032

PATIENT
  Age: 85 Year
  Sex: Female

DRUGS (1)
  1. RAPIACTA [Suspect]
     Active Substance: PERAMIVIR
     Indication: INFLUENZA
     Route: 042
     Dates: start: 20150117, end: 20150117

REACTIONS (4)
  - Aspartate aminotransferase increased [None]
  - Hypercapnia [None]
  - Liver disorder [None]
  - Alanine aminotransferase increased [None]

NARRATIVE: CASE EVENT DATE: 20150118
